FAERS Safety Report 12557089 (Version 2)
Quarter: 2017Q3

REPORT INFORMATION
  Report Type: Spontaneous
  Country: US (occurrence: US)
  Receive Date: 20160714
  Receipt Date: 20170726
  Transmission Date: 20171127
  Serious: Yes (Other)
  Sender: FDA-Public Use
  Company Number: US-TARO-2016TAR00571

PATIENT
  Age: 59 Year
  Sex: Male
  Weight: 250.79 kg

DRUGS (4)
  1. CARBAMAZEPINE EXTENDED RELEASE CAPSULES 200 MG (PRASCO) [Suspect]
     Active Substance: CARBAMAZEPINE
     Dosage: UNK
     Dates: start: 20151114
  2. CARBAMAZEPINE EXTENDED RELEASE CAPSULES 200 MG [Suspect]
     Active Substance: CARBAMAZEPINE
     Indication: SEIZURE
     Dosage: 6 CAPSULES, 1X/DAY
     Route: 048
     Dates: start: 2006
  3. UNSPECIFIED ORANGE CAPSULE [Concomitant]
     Active Substance: UNSPECIFIED INGREDIENT
     Indication: SLEEP DISORDER
     Dosage: 1X DAY, AT BEDTIME
  4. ^CAPTIL^ [Concomitant]

REACTIONS (9)
  - Visual impairment [None]
  - Fall [Recovered/Resolved]
  - Aggression [None]
  - Lip injury [Not Recovered/Not Resolved]
  - Liver disorder [Unknown]
  - Product taste abnormal [None]
  - Loss of consciousness [Recovered/Resolved]
  - Contusion [Not Recovered/Not Resolved]
  - Product quality issue [None]

NARRATIVE: CASE EVENT DATE: 201512
